FAERS Safety Report 21909251 (Version 5)
Quarter: 2023Q1

REPORT INFORMATION
  Report Type: Spontaneous
  Country: PR (occurrence: PR)
  Receive Date: 20230125
  Receipt Date: 20230326
  Transmission Date: 20230418
  Serious: No
  Sender: FDA-Public Use
  Company Number: PR-JNJFOC-20230139274

PATIENT
  Age: 62 Year
  Sex: Female
  Weight: 74.910 kg

DRUGS (9)
  1. SIMPONI [Suspect]
     Active Substance: GOLIMUMAB
     Indication: Rheumatoid arthritis
     Route: 058
     Dates: start: 20221214
  2. PREDNISONE [Concomitant]
     Active Substance: PREDNISONE
  3. HYDROXYCHLOROQUINE DIPHOSPHATE [Concomitant]
     Active Substance: HYDROXYCHLOROQUINE DIPHOSPHATE
  4. METHOTREXATE [Concomitant]
     Active Substance: METHOTREXATE
  5. CELEBREX [Concomitant]
     Active Substance: CELECOXIB
  6. GABAPENTIN [Concomitant]
     Active Substance: GABAPENTIN
  7. FOLIC ACID [Concomitant]
     Active Substance: FOLIC ACID
  8. OMEPRAZOLE [Concomitant]
     Active Substance: OMEPRAZOLE
     Indication: Gastric disorder
  9. VITAMIN D3 [Concomitant]
     Active Substance: CHOLECALCIFEROL

REACTIONS (4)
  - Device issue [Unknown]
  - Pain [Unknown]
  - Product dose omission issue [Unknown]
  - COVID-19 [Unknown]

NARRATIVE: CASE EVENT DATE: 20230117
